FAERS Safety Report 18499351 (Version 1)
Quarter: 2020Q4

REPORT INFORMATION
  Report Type: Spontaneous
  Country: US (occurrence: US)
  Receive Date: 20201112
  Receipt Date: 20201112
  Transmission Date: 20210114
  Serious: Yes (Other)
  Sender: FDA-Public Use
  Company Number: US-MIKART, LLC-2095891

PATIENT
  Sex: Male

DRUGS (12)
  1. OXYCODONE. [Concomitant]
     Active Substance: OXYCODONE HYDROCHLORIDE
  2. MSIR [Concomitant]
     Active Substance: MORPHINE SULFATE
  3. TRAMADOL ER [Concomitant]
     Active Substance: TRAMADOL HYDROCHLORIDE
  4. HYSINGLA ER [Concomitant]
     Active Substance: HYDROCODONE BITARTRATE
  5. HYDROMORPHONE ORAL SOLUTION [Concomitant]
     Active Substance: HYDROMORPHONE
  6. HYDROCODONE BITARTRATE AND ACETAMINOPHEN [Suspect]
     Active Substance: ACETAMINOPHEN\HYDROCODONE BITARTRATE
     Indication: COLITIS ULCERATIVE
     Route: 048
     Dates: start: 2016
  7. OXYFAST [Concomitant]
     Active Substance: OXYCODONE
  8. DHC PLUS [Concomitant]
     Active Substance: ACETAMINOPHEN\CAFFEINE\DIHYDROCODEINE BITARTRATE
  9. HYDROCODONE BITARTRATE AND ACETAMINOPHEN [Suspect]
     Active Substance: ACETAMINOPHEN\HYDROCODONE BITARTRATE
     Indication: ARTHRITIS
     Route: 048
     Dates: start: 2016
  10. PALLADONE [Concomitant]
     Active Substance: HYDROMORPHONE HYDROCHLORIDE
  11. HYDROCODONE BITARTRATE AND ACETAMINOPHEN [Concomitant]
     Active Substance: ACETAMINOPHEN\HYDROCODONE BITARTRATE
  12. NORCO [Concomitant]
     Active Substance: ACETAMINOPHEN\HYDROCODONE BITARTRATE

REACTIONS (2)
  - Substance use disorder [Unknown]
  - Dependence [Unknown]
